FAERS Safety Report 10688298 (Version 1)
Quarter: 2015Q1

REPORT INFORMATION
  Report Type: Report from Study
  Country: JP (occurrence: JP)
  Receive Date: 20150102
  Receipt Date: 20150102
  Transmission Date: 20150720
  Serious: Yes (Death)
  Sender: FDA-Public Use
  Company Number: JP-PFIZER INC-2014362103

PATIENT

DRUGS (2)
  1. IRINOTECAN HCL [Suspect]
     Active Substance: IRINOTECAN HYDROCHLORIDE
     Indication: OVARIAN CANCER
     Dosage: 70 MG/M2 OVER 90MIN, CYCLIC, (ON DAYS 1 AND 15)
     Route: 042
  2. ETOPOSIDE. [Suspect]
     Active Substance: ETOPOSIDE
     Indication: OVARIAN CANCER
     Dosage: 50 MG/M2, CYCLIC (ONCE A DAY FROM DAY 1 TO DAY 21)
     Route: 048

REACTIONS (1)
  - Disseminated intravascular coagulation [Fatal]
